FAERS Safety Report 21455389 (Version 1)
Quarter: 2022Q4

REPORT INFORMATION
  Report Type: Spontaneous
  Country: JP (occurrence: JP)
  Receive Date: 20221014
  Receipt Date: 20221014
  Transmission Date: 20230113
  Serious: Yes (Hospitalization, Other)
  Sender: FDA-Public Use
  Company Number: JP-NBI-J202217284BIPI

PATIENT
  Age: 72 Year
  Sex: Male

DRUGS (1)
  1. OFEV [Suspect]
     Active Substance: NINTEDANIB
     Indication: Idiopathic pulmonary fibrosis
     Route: 048
     Dates: start: 20220621

REACTIONS (8)
  - Lung neoplasm malignant [Not Recovered/Not Resolved]
  - Candida infection [Not Recovered/Not Resolved]
  - Genital blister [Not Recovered/Not Resolved]
  - Blood pressure decreased [Not Recovered/Not Resolved]
  - Pyrexia [Not Recovered/Not Resolved]
  - Platelet count decreased [Unknown]
  - Hyporesponsive to stimuli [Unknown]
  - Stomatitis [Unknown]

NARRATIVE: CASE EVENT DATE: 20220801
